FAERS Safety Report 25975743 (Version 1)
Quarter: 2025Q4

REPORT INFORMATION
  Report Type: Spontaneous
  Country: US (occurrence: US)
  Receive Date: 20251029
  Receipt Date: 20251029
  Transmission Date: 20260118
  Serious: Yes (Hospitalization, Disabling, Other)
  Sender: IBSA INSTITUT BIOCHIMIQUE
  Company Number: US-IBSA PHARMA INC.-2025IBS000562

PATIENT

DRUGS (2)
  1. TIROSINT [Suspect]
     Active Substance: LEVOTHYROXINE SODIUM
     Indication: Hypothyroidism
     Dosage: 50 MICROGRAM, QD
     Dates: start: 202010
  2. FOSAMAX [Concomitant]
     Active Substance: ALENDRONATE SODIUM
     Indication: Product used for unknown indication

REACTIONS (7)
  - Epilepsy [Unknown]
  - Hip fracture [Unknown]
  - Paralysis [Unknown]
  - Femur fracture [Unknown]
  - Wheelchair user [Unknown]
  - Seizure [Unknown]
  - Speech sound disorder [Unknown]

NARRATIVE: CASE EVENT DATE: 20250701
